FAERS Safety Report 5678840-0 (Version None)
Quarter: 2008Q1

REPORT INFORMATION
  Report Type: 
  Country: None (occurrence: None)
  Receive Date: 20080320
  Receipt Date: 20080219
  Transmission Date: 20080703
  Serious: Yes (Other)
  Sender: FDA-Public Use
  Company Number: 2008S1002657

PATIENT
  Age: 92 Year
  Sex: Female

DRUGS (2)
  1. TRAMADOL HCL [Suspect]
     Indication: ARTHRALGIA
     Dosage: 200 MG; NULL_1_DAY, 200 MG; PROLONGED-RELEASE TABLET; NULL_1_DAY
  2. IRBESARTAN [Concomitant]

REACTIONS (3)
  - FALL [None]
  - INAPPROPRIATE ANTIDIURETIC HORMONE SECRETION [None]
  - INCOHERENT [None]
